FAERS Safety Report 17133336 (Version 1)
Quarter: 2019Q4

REPORT INFORMATION
  Report Type: Spontaneous
  Country: ES (occurrence: ES)
  Receive Date: 20191210
  Receipt Date: 20191210
  Transmission Date: 20200122
  Serious: Yes (Other)
  Sender: FDA-Public Use
  Company Number: ES-TEVA-2019-ES-1148412

PATIENT
  Age: 20 Year
  Sex: Male

DRUGS (3)
  1. FINASTERIDA (2624A) [Suspect]
     Active Substance: FINASTERIDE
     Dosage: 5 MG
     Route: 048
     Dates: start: 20190923, end: 20191023
  2. AVAMYS 27,5 MICROGRAMOS/PULVERIZACION, SUSPENSION PARA PULVERIZACION N [Concomitant]
     Indication: RHINITIS
     Dosage: 27.5 MCG
     Route: 045
     Dates: start: 20190819
  3. PULMICORT TURBUHALER 200 MICROGRAMOS/INHALACI?N POLVO PARA INHALACION [Concomitant]
     Indication: ASTHMA
     Dosage: 200 MCG
     Route: 055
     Dates: start: 20190819

REACTIONS (2)
  - Syncope [Recovered/Resolved]
  - Fall [Recovered/Resolved]

NARRATIVE: CASE EVENT DATE: 20191023
